FAERS Safety Report 9390264 (Version 1)
Quarter: 2013Q3

REPORT INFORMATION
  Report Type: Spontaneous
  Country: GB (occurrence: GB)
  Receive Date: 20130709
  Receipt Date: 20130709
  Transmission Date: 20140515
  Serious: Yes (Other)
  Sender: FDA-Public Use
  Company Number: GB-PFIZER INC-2013197579

PATIENT
  Age: 43 Year
  Sex: Female
  Weight: 62.4 kg

DRUGS (3)
  1. OXALIPLATIN [Suspect]
     Indication: NEOADJUVANT THERAPY
     Dosage: UNK
     Dates: start: 201304
  2. CAPECITABINE [Suspect]
     Indication: NEOADJUVANT THERAPY
     Dosage: 1650 MG, 2X/DAY
     Route: 048
     Dates: start: 201304, end: 20130524
  3. METOCLOPRAMIDE [Concomitant]
     Dosage: UNK

REACTIONS (3)
  - Rash [Recovered/Resolved]
  - Vomiting [Unknown]
  - Blister [Unknown]
